FAERS Safety Report 8812080 (Version 1)
Quarter: 2012Q4

REPORT INFORMATION
  Report Type: Report from Study
  Country: CA (occurrence: CA)
  Receive Date: 20120927
  Receipt Date: 20120927
  Transmission Date: 20130627
  Serious: Yes (Hospitalization)
  Sender: FDA-Public Use
  Company Number: CA-ROCHE-1135139

PATIENT
  Sex: Male
  Weight: 71.28 kg

DRUGS (5)
  1. XELODA [Suspect]
     Indication: RECTAL CANCER
     Route: 048
     Dates: start: 201112
  2. XELODA [Suspect]
     Dosage: dose decreased
     Route: 065
     Dates: start: 201201
  3. PANTOLOC [Concomitant]
  4. NORVASC [Concomitant]
  5. FRAGMIN [Concomitant]

REACTIONS (2)
  - Tumour excision [Unknown]
  - Diarrhoea [Recovered/Resolved]
